FAERS Safety Report 10469675 (Version 5)
Quarter: 2015Q2

REPORT INFORMATION
  Report Type: Spontaneous
  Country: US (occurrence: US)
  Receive Date: 20140923
  Receipt Date: 20150604
  Transmission Date: 20150821
  Serious: Yes (Other)
  Sender: FDA-Public Use
  Company Number: US-PFIZER INC-2014081321

PATIENT
  Age: 48 Year
  Sex: Female
  Weight: 97.52 kg

DRUGS (28)
  1. HYDROCODONE BITARTRATE, PARACETAMOL [Concomitant]
     Active Substance: ACETAMINOPHEN\HYDROCODONE BITARTRATE
     Indication: RHEUMATOID ARTHRITIS
     Dosage: [BITARTRATE 10 MG]/[ACETAMINOPHEN 325MG]
  2. METFORMIN [Concomitant]
     Active Substance: METFORMIN HYDROCHLORIDE
     Indication: DIABETES MELLITUS
     Dosage: 500 MG TABLET 3 PER DAY
  3. CENTRUM [Concomitant]
     Active Substance: VITAMINS
     Dosage: 1 DF, DAILY
  4. FUROSEMIDE. [Concomitant]
     Active Substance: FUROSEMIDE
     Indication: FLUID RETENTION
     Dosage: 40 MG, 1X/DAY
  5. HYDROCHLOROTHIAZIDE. [Concomitant]
     Active Substance: HYDROCHLOROTHIAZIDE
     Indication: BLOOD PRESSURE ABNORMAL
     Dosage: 25 MG, 1X/DAY
  6. ATORVASTATIN [Concomitant]
     Active Substance: ATORVASTATIN
     Indication: BLOOD CHOLESTEROL ABNORMAL
     Dosage: 20 MG, 1X/DAY
  7. CALCIUM 500+D3 [Concomitant]
     Indication: BONE DISORDER
     Dosage: 1 DF, 2X/DAY (600 IU VITAMIN D3, 1 TABLET TWICE A DAY)
  8. POTASSIUM [Concomitant]
     Active Substance: POTASSIUM
     Dosage: 10 MEQ, 2 CAPSULES TWICE A DAY
  9. LYRICA [Suspect]
     Active Substance: PREGABALIN
     Dosage: 75 MG, 2X/DAY
  10. MEDROXYPROGESTERON ACETATE [Concomitant]
     Dosage: 10 MG,  (1 PER DAY FOR 1ST 10 DAYS OF EVERY MONTH)
  11. SUBLINGUAL VITAMIN B12 2500 MCG METHYLCOBALAMIN [Concomitant]
     Dosage: 1 DF, WEEKLY
  12. HEALTHY EYES EYE VITAMIN AND MINERAL SUPPLEMENT WITH LUTEIN AND ZINC A [Concomitant]
     Dosage: 1 DF, DAILY
  13. IRON FERROUS SULFATE [Concomitant]
     Indication: IRON DEFICIENCY
     Dosage: 1 DF, DAILY (IRON 65 MG, 325 MG FERROUS SULPHATE, TABLET 1 PER DAY)
  14. LYRICA [Suspect]
     Active Substance: PREGABALIN
     Indication: FIBROMYALGIA
     Dosage: 50 MG, UNK
     Dates: start: 2001
  15. DICYCLOMINE [Concomitant]
     Active Substance: DICYCLOMINE HYDROCHLORIDE
     Indication: DIVERTICULUM
     Dosage: 10 MG, 3X/DAY
  16. CINNAMON 500 MG PLUS CHROMIUM METABOLISM SUPPORT [Concomitant]
     Dosage: 2 PER DAY, TWICE A DAY
  17. OMEPRAZOLE. [Concomitant]
     Active Substance: OMEPRAZOLE
     Indication: GASTROOESOPHAGEAL REFLUX DISEASE
     Dosage: 40 MG, 2X/DAY
  18. LYRICA [Suspect]
     Active Substance: PREGABALIN
     Dosage: 50 MG, 2X/DAY
     Dates: start: 2013
  19. NORCO [Concomitant]
     Active Substance: ACETAMINOPHEN\HYDROCODONE BITARTRATE
     Indication: RHEUMATOID ARTHRITIS
     Dosage: 10-3.5 MG TABLET, 3 TABLETS PER DAY
  20. LEVOTHYROXINE [Concomitant]
     Active Substance: LEVOTHYROXINE
     Indication: THYROID DISORDER
     Dosage: 50 ?G, 1X/DAY
  21. BIOTIN [Concomitant]
     Active Substance: BIOTIN
     Indication: ROUTINE HEALTH MAINTENANCE
     Dosage: 10000 ?G, 1X/DAY
  22. FUROSEMIDE. [Concomitant]
     Active Substance: FUROSEMIDE
     Indication: OEDEMA
  23. FISH, FLAXSEED, BORAGE OIL OMEGA 3,6,9 [Concomitant]
     Dosage: 2 A DAY
  24. LYRICA [Suspect]
     Active Substance: PREGABALIN
     Dosage: 75 MG, 1X/DAY
     Dates: start: 20140314
  25. LISINOPRIL. [Concomitant]
     Active Substance: LISINOPRIL
     Indication: BLOOD PRESSURE ABNORMAL
     Dosage: 10 MG, 1X/DAY
  26. ASPIRIN 81 [Concomitant]
     Dosage: 2 DF, DAILY (81 MG, TWO PER DAY)
  27. COENZYME Q10 [Concomitant]
     Active Substance: UBIDECARENONE
     Dosage: 2 DF, DAILY (TWO A DAY)
  28. VITAMIN D [Concomitant]
     Active Substance: CHOLECALCIFEROL
     Dosage: 5000 IU, DAILY (5000 IU, HE BELIEVED THAT 1 PER DAY)

REACTIONS (6)
  - Condition aggravated [Unknown]
  - Back pain [Unknown]
  - Splenic cyst [Not Recovered/Not Resolved]
  - Abdominal pain upper [Unknown]
  - Pancreatic cyst [Not Recovered/Not Resolved]
  - Pain [Unknown]

NARRATIVE: CASE EVENT DATE: 20140314
